FAERS Safety Report 7527788-5 (Version None)
Quarter: 2011Q2

REPORT INFORMATION
  Report Type: 
  Country: None (occurrence: None)
  Receive Date: 20110607
  Receipt Date: 20110525
  Transmission Date: 20111010
  Serious: Yes (Hospitalization)
  Sender: FDA-Public Use
  Company Number: US-ASTRAZENECA-2011SE32252

PATIENT
  Sex: Female

DRUGS (1)
  1. NEXIUM [Suspect]
     Route: 048
     Dates: start: 20040101, end: 20100101

REACTIONS (4)
  - OSTEOPOROSIS [None]
  - SPINAL COMPRESSION FRACTURE [None]
  - BACK INJURY [None]
  - BONE LOSS [None]
